FAERS Safety Report 20399888 (Version 2)
Quarter: 2022Q1

REPORT INFORMATION
  Report Type: Spontaneous
  Country: US (occurrence: US)
  Receive Date: 20220131
  Receipt Date: 20220201
  Transmission Date: 20220423
  Serious: No
  Sender: FDA-Public Use
  Company Number: US-ABBVIE-21K-163-3927501-00

PATIENT
  Sex: Female

DRUGS (1)
  1. HUMIRA [Suspect]
     Active Substance: ADALIMUMAB
     Indication: Product used for unknown indication
     Route: 058

REACTIONS (11)
  - Dizziness [Unknown]
  - Hypoacusis [Unknown]
  - Injection site haemorrhage [Unknown]
  - Pain [Unknown]
  - Immune system disorder [Unknown]
  - Poor quality sleep [Unknown]
  - Pharyngeal disorder [Unknown]
  - Memory impairment [Unknown]
  - Back pain [Unknown]
  - Incorrect dose administered [Recovered/Resolved]
  - Device issue [Unknown]

NARRATIVE: CASE EVENT DATE: 20210101
